FAERS Safety Report 10037464 (Version 1)
Quarter: 2014Q1

REPORT INFORMATION
  Report Type: Other
  Country: GB (occurrence: GB)
  Receive Date: 20140326
  Receipt Date: 20140326
  Transmission Date: 20141002
  Serious: Yes (Hospitalization)
  Sender: FDA-Public Use
  Company Number: GB-PERRIGO-14GB002952

PATIENT
  Sex: 0

DRUGS (6)
  1. DEXSOL 0.4MG/ML PL00427/0137 [Suspect]
     Indication: PRODUCT USED FOR UNKNOWN INDICATION
     Dosage: 20 MG, QD
     Route: 048
     Dates: start: 20120807
  2. SYPROL 10MG/ML PL00427/0124 [Suspect]
     Indication: PRODUCT USED FOR UNKNOWN INDICATION
     Dosage: 40 MG, BID
     Route: 048
     Dates: start: 2009, end: 20120907
  3. BORTEZOMIB [Suspect]
     Indication: RENAL FAILURE
     Dosage: 2.1 MG, QD
     Route: 042
     Dates: start: 20120807, end: 20120904
  4. BORTEZOMIB [Suspect]
     Indication: PLASMA CELL MYELOMA
  5. NIFEDIPINE [Suspect]
     Indication: HYPERTENSION
     Dosage: 90 MG, QD
     Route: 048
     Dates: start: 2009, end: 20120907
  6. DOXAZOSIN [Suspect]
     Indication: HYPERTENSION
     Dosage: 4 MG, BID
     Route: 048
     Dates: start: 2009, end: 20120907

REACTIONS (1)
  - Renal failure acute [Recovering/Resolving]
